FAERS Safety Report 9459762 (Version 1)
Quarter: 2013Q3

REPORT INFORMATION
  Report Type: Spontaneous
  Country: AU (occurrence: AU)
  Receive Date: 20130815
  Receipt Date: 20130815
  Transmission Date: 20140515
  Serious: Yes (Hospitalization, Other)
  Sender: FDA-Public Use
  Company Number: AU-ASTELLAS-2013US008494

PATIENT
  Sex: Female

DRUGS (1)
  1. TARCEVA [Suspect]
     Indication: PRODUCT USED FOR UNKNOWN INDICATION
     Dosage: 250 MG, UID/QD
     Route: 065
     Dates: start: 20130115, end: 20130603

REACTIONS (6)
  - Overdose [Unknown]
  - Pneumatosis intestinalis [Not Recovered/Not Resolved]
  - Lethargy [Not Recovered/Not Resolved]
  - Nausea [Not Recovered/Not Resolved]
  - Diarrhoea [Not Recovered/Not Resolved]
  - Weight decreased [Not Recovered/Not Resolved]
